FAERS Safety Report 4294253-0 (Version None)
Quarter: 2004Q1

REPORT INFORMATION
  Report Type: 
  Country: None (occurrence: None)
  Receive Date: 20040211
  Receipt Date: 20030724
  Transmission Date: 20041129
  Serious: No
  Sender: FDA-Public Use
  Company Number: US-GLAXOSMITHKLINE-A0418800A

PATIENT
  Age: 57 Year
  Sex: Female

DRUGS (4)
  1. LAMICTAL [Suspect]
     Indication: ANXIETY
     Route: 048
     Dates: start: 20030701
  2. PROZAC [Concomitant]
  3. ZOCOR [Concomitant]
  4. PREMPRO [Concomitant]

REACTIONS (1)
  - SKIN DISCOLOURATION [None]
